FAERS Safety Report 8924801 (Version 1)
Quarter: 2012Q4

REPORT INFORMATION
  Report Type: 
  Country: PT (occurrence: PT)
  Receive Date: 20121126
  Receipt Date: 20121126
  Transmission Date: 20130627
  Serious: Yes (Hospitalization)
  Sender: FDA-Public Use
  Company Number: PT-ASTRAZENECA-2012SE88633

PATIENT
  Age: 2 Month
  Sex: Female
  Weight: 1.6 kg

DRUGS (2)
  1. SYNAGIS [Suspect]
     Indication: ANTIVIRAL PROPHYLAXIS
     Route: 030
     Dates: start: 20121026
  2. UNKNOWN ANTIBIOTICS [Concomitant]
     Indication: INFECTION

REACTIONS (4)
  - Choking [Unknown]
  - Respiratory syncytial virus infection [Unknown]
  - C-reactive protein increased [Unknown]
  - Nasal obstruction [Unknown]
